FAERS Safety Report 6554715-X (Version None)
Quarter: 2010Q1

REPORT INFORMATION
  Report Type: 
  Country: None (occurrence: None)
  Receive Date: 20100127
  Receipt Date: 20100119
  Transmission Date: 20100710
  Serious: Yes (Hospitalization)
  Sender: FDA-Public Use
  Company Number: JP-JNJFOC-20100110160

PATIENT
  Age: 9 Year
  Sex: Male

DRUGS (6)
  1. CRAVIT [Suspect]
     Indication: PYREXIA
     Route: 048
  2. MUCOSOLVAN [Concomitant]
     Route: 065
  3. CALONAL [Concomitant]
     Route: 065
  4. BIOFERMIN R [Concomitant]
     Route: 065
  5. ALL OTHER THERAPEUTIC PRODUCTS [Concomitant]
     Route: 065
  6. FLOMOX [Concomitant]
     Route: 065

REACTIONS (2)
  - GLUCOSE URINE PRESENT [None]
  - NEPHRITIS [None]
